FAERS Safety Report 13981914 (Version 1)
Quarter: 2017Q3

REPORT INFORMATION
  Report Type: Spontaneous
  Country: US (occurrence: None)
  Receive Date: 20170915
  Receipt Date: 20170915
  Transmission Date: 20171128
  Serious: No
  Sender: FDA-Public Use
  Company Number: None

PATIENT
  Age: 48 Year
  Sex: Female

DRUGS (1)
  1. COPAXONE [Suspect]
     Active Substance: GLATIRAMER ACETATE

REACTIONS (5)
  - Cognitive disorder [None]
  - Gait disturbance [None]
  - Injection site bruising [None]
  - Injection site atrophy [None]
  - Speech disorder [None]

NARRATIVE: CASE EVENT DATE: 20170915
